APPROVED DRUG PRODUCT: TISSUEBLUE
Active Ingredient: BRILLIANT BLUE G
Strength: 0.025%
Dosage Form/Route: SOLUTION;OPHTHALMIC
Application: N209569 | Product #001
Applicant: DUTCH OPHTHALMIC RESEARCH CENTER INTERNATIONAL BV
Approved: Dec 20, 2019 | RLD: Yes | RS: Yes | Type: RX

EXCLUSIVITY:
Code: ODE-282 | Date: Dec 20, 2026